FAERS Safety Report 18849478 (Version 1)
Quarter: 2021Q1

REPORT INFORMATION
  Report Type: Report from Study
  Country: US (occurrence: US)
  Receive Date: 20210205
  Receipt Date: 20210205
  Transmission Date: 20210419
  Serious: Yes (Death, Other)
  Sender: FDA-Public Use
  Company Number: US-ACADIA PHARMACEUTICALS INC.-ACA-2021-PIM-000130

PATIENT
  Sex: Male

DRUGS (15)
  1. VITAMINS NOS [Concomitant]
     Active Substance: VITAMINS
  2. PROBIOTICS NOS [Concomitant]
     Active Substance: PROBIOTICS NOS
  3. RIVASTIGMINE. [Concomitant]
     Active Substance: RIVASTIGMINE
  4. NUPLAZID [Suspect]
     Active Substance: PIMAVANSERIN TARTRATE
     Indication: PARKINSON^S DISEASE
     Dosage: 34 MILLIGRAM, QD
     Route: 048
  5. QUETIAPINE FUMARATE. [Concomitant]
     Active Substance: QUETIAPINE FUMARATE
  6. MYRBETRIQ [Concomitant]
     Active Substance: MIRABEGRON
  7. TAMSULOSIN [TAMSULOSIN HYDROCHLORIDE] [Concomitant]
     Active Substance: TAMSULOSIN HYDROCHLORIDE
  8. OMEPRAZOLE. [Concomitant]
     Active Substance: OMEPRAZOLE
  9. URSODIOL. [Concomitant]
     Active Substance: URSODIOL
  10. CALCIUM [Concomitant]
     Active Substance: CALCIUM
  11. CLINDAMYCIN HCL [Concomitant]
     Active Substance: CLINDAMYCIN HYDROCHLORIDE
  12. ENVARSUS XR [Concomitant]
     Active Substance: TACROLIMUS
  13. PREDNISONE. [Concomitant]
     Active Substance: PREDNISONE
  14. FERROUS SULFATE. [Concomitant]
     Active Substance: FERROUS SULFATE
  15. MAGNESIUM OXIDE. [Concomitant]
     Active Substance: MAGNESIUM OXIDE

REACTIONS (1)
  - Death [Recovered/Resolved]
